FAERS Safety Report 9006202 (Version 1)
Quarter: 2013Q1

REPORT INFORMATION
  Report Type: Spontaneous
  Country: US (occurrence: US)
  Receive Date: 20130110
  Receipt Date: 20130110
  Transmission Date: 20140127
  Serious: Yes (Other)
  Sender: FDA-Public Use
  Company Number: US-009507513-0901USA02244

PATIENT
  Age: 4 Year
  Sex: Female
  Weight: 21.32 kg

DRUGS (1)
  1. SINGULAIR [Suspect]
     Indication: ASTHMA
     Dosage: 10 MG, QD (1 TABLET ONCE PER DAY)
     Route: 048
     Dates: start: 20070901, end: 20070914

REACTIONS (8)
  - Abnormal dreams [Recovered/Resolved]
  - Aggression [Recovered/Resolved]
  - Agitation [Recovered/Resolved]
  - Anger [Recovered/Resolved]
  - Frustration [Recovered/Resolved]
  - Nightmare [Recovered/Resolved]
  - Overdose [Unknown]
  - Fear [Recovered/Resolved]
